FAERS Safety Report 23626465 (Version 1)
Quarter: 2024Q1

REPORT INFORMATION
  Report Type: Spontaneous
  Country: US (occurrence: US)
  Receive Date: 20240313
  Receipt Date: 20240313
  Transmission Date: 20240410
  Serious: No
  Sender: FDA-Public Use
  Company Number: US-ABBVIE-5673034

PATIENT

DRUGS (2)
  1. RINVOQ [Suspect]
     Active Substance: UPADACITINIB
     Indication: Product used for unknown indication
     Route: 048
  2. CIBINQO [Suspect]
     Active Substance: ABROCITINIB
     Indication: Product used for unknown indication
     Dosage: 100MG
     Route: 065

REACTIONS (6)
  - Eczema [Unknown]
  - Transient acantholytic dermatosis [Unknown]
  - Dermatitis atopic [Unknown]
  - Papule [Unknown]
  - Skin exfoliation [Unknown]
  - Erythema [Unknown]
